FAERS Safety Report 6338781-2 (Version None)
Quarter: 2009Q3

REPORT INFORMATION
  Report Type: 
  Country: None (occurrence: None)
  Receive Date: 20090903
  Receipt Date: 20090824
  Transmission Date: 20100115
  Serious: Yes (Other)
  Sender: FDA-Public Use
  Company Number: US-JNJFOC-20090702384

PATIENT
  Sex: Female
  Weight: 60.78 kg

DRUGS (16)
  1. REMICADE [Suspect]
     Indication: RHEUMATOID ARTHRITIS
     Dosage: 3 MG/KG
     Route: 042
  2. ATENOLOL [Suspect]
     Indication: DRUG USE FOR UNKNOWN INDICATION
  3. CALCIUM [Concomitant]
  4. TYLENOL (CAPLET) [Concomitant]
     Indication: PREMEDICATION
     Route: 048
  5. SOLU-CORTEF [Concomitant]
     Route: 042
  6. METHOTREXATE [Concomitant]
  7. AZATHIOPRINE [Concomitant]
  8. PROMETHAZINE [Concomitant]
  9. PANTOPRAZOLE SODIUM [Concomitant]
  10. FOLIC ACID [Concomitant]
  11. PREDNISONE [Concomitant]
  12. HYDROCODONE [Concomitant]
     Route: 048
  13. VITAMIN D [Concomitant]
  14. DOXYCYCLINE [Concomitant]
  15. BENADRYL [Concomitant]
  16. FENTANYL [Concomitant]
     Route: 062

REACTIONS (8)
  - DIZZINESS [None]
  - FACIAL BONES FRACTURE [None]
  - FALL [None]
  - HEADACHE [None]
  - OPEN WOUND [None]
  - PAIN [None]
  - SYNCOPE [None]
  - WRIST FRACTURE [None]
